FAERS Safety Report 9127002 (Version 1)
Quarter: 2013Q1

REPORT INFORMATION
  Report Type: Spontaneous
  Country: AU (occurrence: AU)
  Receive Date: 20130122
  Receipt Date: 20130122
  Transmission Date: 20140127
  Serious: Yes (Hospitalization)
  Sender: FDA-Public Use
  Company Number: AU-GLAXOSMITHKLINE-B0860947A

PATIENT
  Age: 3 None
  Sex: Male

DRUGS (3)
  1. VENTOLIN [Suspect]
     Indication: ASTHMA
     Route: 055
     Dates: start: 201212
  2. FLIXOTIDE [Suspect]
     Indication: PRODUCT USED FOR UNKNOWN INDICATION
     Dosage: 250MCG TWICE PER DAY
     Route: 055
  3. AMINOPHYLLINE [Suspect]
     Indication: PRODUCT USED FOR UNKNOWN INDICATION
     Route: 042

REACTIONS (6)
  - Asthma [Unknown]
  - Wheezing [Unknown]
  - Inhalation therapy [Unknown]
  - Drug ineffective [Unknown]
  - Heart rate increased [Unknown]
  - Vomiting [Unknown]
